FAERS Safety Report 4500819-2 (Version None)
Quarter: 2004Q4

REPORT INFORMATION
  Report Type: 
  Country: None (occurrence: None)
  Receive Date: 20041115
  Receipt Date: 20041108
  Transmission Date: 20050328
  Serious: Yes (Other)
  Sender: FDA-Public Use
  Company Number: CH-MERCK-0411CHE00025

PATIENT
  Age: 24 Year
  Sex: Male

DRUGS (2)
  1. VIOXX [Suspect]
     Indication: SPINAL DISORDER
     Route: 048
     Dates: start: 20040324
  2. TIZANIDINE HCL [Suspect]
     Indication: SPINAL DISORDER
     Route: 048
     Dates: start: 20040324

REACTIONS (3)
  - ABDOMINAL PAIN [None]
  - DERMATITIS BULLOUS [None]
  - PYREXIA [None]
